FAERS Safety Report 8916587 (Version 2)
Quarter: 2013Q1

REPORT INFORMATION
  Report Type: Spontaneous
  Country: US (occurrence: US)
  Receive Date: 20121120
  Receipt Date: 20130218
  Transmission Date: 20140127
  Serious: Yes (Hospitalization, Other)
  Sender: FDA-Public Use
  Company Number: US-BAYER-2012-119243

PATIENT
  Age: 31 Year
  Sex: Female
  Weight: 57 kg

DRUGS (5)
  1. MIRENA [Suspect]
     Indication: CONTRACEPTION
     Dosage: 20 MCG/24HR, CONT
     Route: 015
     Dates: start: 20110525, end: 20121112
  2. GENERESS CHEWABLE TABLET [Concomitant]
     Dosage: CHEW I TABLET BY ORAL FOR 28 DAYS
  3. HUMIRA [Concomitant]
     Dosage: EVERY OTHER WEEK
     Dates: start: 20121109
  4. SERTRALINE [Concomitant]
     Dosage: 25 MG, QD
     Route: 048
     Dates: start: 20120809
  5. PREDNISONE [Concomitant]
     Dosage: 10 MG, QD

REACTIONS (3)
  - Device dislocation [Recovered/Resolved]
  - Menstrual disorder [Not Recovered/Not Resolved]
  - Genital haemorrhage [Recovered/Resolved]
